FAERS Safety Report 25239681 (Version 2)
Quarter: 2025Q4

REPORT INFORMATION
  Report Type: Report from Study
  Country: US (occurrence: US)
  Receive Date: 20250425
  Receipt Date: 20251231
  Transmission Date: 20260117
  Serious: Yes (Other)
  Sender: PFIZER
  Company Number: US-PFIZER INC-PV202500049046

PATIENT
  Age: 57 Year
  Sex: Female

DRUGS (1)
  1. IBRANCE [Suspect]
     Active Substance: PALBOCICLIB
     Indication: Metastases to bone
     Dosage: 125 MG, CYCLIC

REACTIONS (6)
  - Pneumonia [Unknown]
  - Decreased appetite [Unknown]
  - Dysgeusia [Unknown]
  - Dry mouth [Unknown]
  - Fatigue [Unknown]
  - White blood cell count decreased [Recovered/Resolved]
